FAERS Safety Report 5463745-0 (Version None)
Quarter: 2007Q3

REPORT INFORMATION
  Report Type: 
  Country: None (occurrence: None)
  Receive Date: 20070920
  Receipt Date: 20070913
  Transmission Date: 20080115
  Serious: No
  Sender: FDA-Public Use
  Company Number: US-BOEHRINGER INGELHEIM PHARMACEUTICALS, INC.-2006-BP-14044BP

PATIENT
  Sex: Female

DRUGS (8)
  1. SPIRIVA [Suspect]
     Indication: CHRONIC OBSTRUCTIVE PULMONARY DISEASE
     Route: 055
     Dates: start: 20051001, end: 20061208
  2. NEXIUM [Concomitant]
  3. ALBUTEROL [Concomitant]
  4. TOPROL-XL [Concomitant]
  5. ENALAPRIL/HCTZ (VAASERTIC) [Concomitant]
  6. CHLORD/CLIDI 5 [Concomitant]
  7. DONNATAL [Concomitant]
  8. CHANTIX [Concomitant]

REACTIONS (3)
  - ALOPECIA [None]
  - BLOOD CHOLESTEROL INCREASED [None]
  - VISION BLURRED [None]
